FAERS Safety Report 14161910 (Version 1)
Quarter: 2017Q4

REPORT INFORMATION
  Report Type: Spontaneous
  Country: US (occurrence: US)
  Receive Date: 20171106
  Receipt Date: 20171106
  Transmission Date: 20180321
  Serious: Yes (Other)
  Sender: FDA-Public Use
  Company Number: US-GE HEALTHCARE LIFE SCIENCES-2017CSU003569

PATIENT
  Sex: Female

DRUGS (1)
  1. OMNISCAN [Suspect]
     Active Substance: GADODIAMIDE
     Indication: PRODUCT USED FOR UNKNOWN INDICATION
     Route: 065

REACTIONS (7)
  - Neoplasm [Unknown]
  - Burning sensation [Unknown]
  - Gadolinium deposition disease [Unknown]
  - Arthralgia [Unknown]
  - Body temperature increased [Unknown]
  - Pruritus [Unknown]
  - Rash [Unknown]
